FAERS Safety Report 16898440 (Version 1)
Quarter: 2019Q4

REPORT INFORMATION
  Report Type: Report from Study
  Country: US (occurrence: US)
  Receive Date: 20191009
  Receipt Date: 20191009
  Transmission Date: 20200122
  Serious: Yes (Death, Other)
  Sender: FDA-Public Use
  Company Number: US-PFIZER INC-2019231988

PATIENT
  Age: 56 Year
  Sex: Female

DRUGS (2)
  1. IBRANCE [Suspect]
     Active Substance: PALBOCICLIB
     Dosage: 125 MG, CYCLIC (125 MG DAILY FOR 21 DAYS OF 28 DAY CYCLE)
     Route: 048
     Dates: start: 20190624, end: 20190819
  2. IBRANCE [Suspect]
     Active Substance: PALBOCICLIB
     Indication: BREAST CANCER FEMALE
     Dosage: 125 MG, DAILY CYCLIC (FOR 21 DAYS OF 28 DAY CYCLE)
     Route: 048
     Dates: start: 20190521, end: 20190623

REACTIONS (10)
  - Fatigue [Not Recovered/Not Resolved]
  - Leukopenia [Recovered/Resolved]
  - Nausea [Not Recovered/Not Resolved]
  - Contusion [Unknown]
  - Neoplasm progression [Unknown]
  - Pruritus [Unknown]
  - Alopecia [Unknown]
  - Death [Fatal]
  - Constipation [Unknown]
  - Product dose omission [Unknown]

NARRATIVE: CASE EVENT DATE: 2019
